FAERS Safety Report 13090172 (Version 2)
Quarter: 2017Q1

REPORT INFORMATION
  Report Type: Report from Study
  Country: CA (occurrence: CA)
  Receive Date: 20170105
  Receipt Date: 20170207
  Transmission Date: 20170428
  Serious: Yes (Hospitalization)
  Sender: FDA-Public Use
  Company Number: CA-EISAI MEDICAL RESEARCH-EC-2016-015984

PATIENT
  Age: 70 Year
  Sex: Female
  Weight: 63 kg

DRUGS (7)
  1. APO-OMEPRAZOLE [Concomitant]
     Active Substance: OMEPRAZOLE
  2. SYNTHROID [Concomitant]
     Active Substance: LEVOTHYROXINE SODIUM
  3. LENVIMA [Suspect]
     Active Substance: LENVATINIB
     Indication: THYROID CANCER
     Route: 048
     Dates: start: 20160324, end: 20170110
  4. LENVIMA [Suspect]
     Active Substance: LENVATINIB
     Dosage: ALTERNATING BETWEEN 4MG AND 10MG
     Route: 048
     Dates: start: 20170124
  5. KEPPRA [Concomitant]
     Active Substance: LEVETIRACETAM
  6. ATIVAN [Concomitant]
     Active Substance: LORAZEPAM
  7. AMLODIPINE [Concomitant]
     Active Substance: AMLODIPINE BESYLATE

REACTIONS (5)
  - Diarrhoea [Unknown]
  - Seasonal allergy [Recovering/Resolving]
  - Blood pressure increased [Unknown]
  - Asthenia [Unknown]
  - Electrolyte imbalance [Recovering/Resolving]

NARRATIVE: CASE EVENT DATE: 2016
